FAERS Safety Report 18592666 (Version 1)
Quarter: 2020Q4

REPORT INFORMATION
  Report Type: Spontaneous
  Country: US (occurrence: US)
  Receive Date: 20201208
  Receipt Date: 20201208
  Transmission Date: 20210114
  Serious: Yes (Other)
  Sender: FDA-Public Use
  Company Number: US-TOLMAR, INC.-20US024234

PATIENT
  Age: 67 Year
  Sex: Female
  Weight: 117 kg

DRUGS (16)
  1. FOSPHENYTOIN [Suspect]
     Active Substance: FOSPHENYTOIN
     Indication: STATUS EPILEPTICUS
     Dosage: 20 MG/KG
     Route: 042
  2. CLOBAZAM. [Suspect]
     Active Substance: CLOBAZAM
     Dosage: 5 MG, QD
     Route: 048
  3. LORAZEPAM. [Suspect]
     Active Substance: LORAZEPAM
     Indication: STATUS EPILEPTICUS
     Dosage: 4 MG
     Route: 042
  4. VALPROATE SODIUM. [Suspect]
     Active Substance: VALPROATE SODIUM
     Indication: STATUS EPILEPTICUS
     Dosage: 25MG/KG
     Route: 042
  5. FOSPHENYTOIN [Suspect]
     Active Substance: FOSPHENYTOIN
     Dosage: 150 MG, TID
     Route: 042
  6. LEVETIRACETAM. [Suspect]
     Active Substance: LEVETIRACETAM
     Indication: STATUS EPILEPTICUS
     Dosage: 1000 MG, SINGLE
     Route: 042
  7. BRIVARACETAM [Suspect]
     Active Substance: BRIVARACETAM
     Dosage: 100 MG, TID
     Route: 042
  8. LACOSAMIDE. [Suspect]
     Active Substance: LACOSAMIDE
     Indication: STATUS EPILEPTICUS
     Dosage: 300 MG, SINGLE
     Route: 042
  9. BRIVARACETAM [Suspect]
     Active Substance: BRIVARACETAM
     Dosage: UNK
     Route: 048
  10. LACOSAMIDE. [Suspect]
     Active Substance: LACOSAMIDE
     Dosage: 150 MG, BID
     Route: 042
  11. CLOBAZAM. [Suspect]
     Active Substance: CLOBAZAM
     Indication: STATUS EPILEPTICUS
     Dosage: 10 MG, BID
     Route: 048
  12. BRIVARACETAM [Suspect]
     Active Substance: BRIVARACETAM
     Dosage: 100 MG, BID
     Route: 042
  13. VALPROATE SODIUM. [Suspect]
     Active Substance: VALPROATE SODIUM
     Dosage: 500 MG, BID
     Route: 042
  14. CLOBAZAM. [Suspect]
     Active Substance: CLOBAZAM
     Dosage: 10 MG MORNING 5 MG EVENING
     Route: 048
  15. BRIVARACETAM [Suspect]
     Active Substance: BRIVARACETAM
     Indication: STATUS EPILEPTICUS
     Dosage: 200 MG
     Route: 042
  16. BRIVARACETAM [Suspect]
     Active Substance: BRIVARACETAM
     Dosage: 100 MG, BID
     Route: 048

REACTIONS (3)
  - Anticonvulsant drug level increased [Unknown]
  - Staphylococcal infection [Unknown]
  - Pneumonia aspiration [Unknown]
